FAERS Safety Report 16969958 (Version 1)
Quarter: 2019Q4

REPORT INFORMATION
  Report Type: Spontaneous
  Country: ES (occurrence: ES)
  Receive Date: 20191029
  Receipt Date: 20191029
  Transmission Date: 20200122
  Serious: Yes (Other)
  Sender: FDA-Public Use
  Company Number: ES-SA-2019SA125074

PATIENT
  Age: 33 Year
  Sex: Female
  Weight: 53 kg

DRUGS (1)
  1. CERDELGA [Suspect]
     Active Substance: ELIGLUSTAT
     Indication: GAUCHER^S DISEASE
     Dosage: 2 (NOS), QD
     Route: 048
     Dates: start: 20181003

REACTIONS (11)
  - Palpitations [Recovered/Resolved]
  - Unevaluable event [Unknown]
  - Urinary tract infection [Unknown]
  - Gastrooesophageal reflux disease [Unknown]
  - Viral infection [Unknown]
  - Chitotriosidase increased [Unknown]
  - Abdominal discomfort [Recovering/Resolving]
  - Helicobacter infection [Recovering/Resolving]
  - Pyrexia [Recovered/Resolved]
  - Weight decreased [Recovering/Resolving]
  - Abdominal pain upper [Unknown]

NARRATIVE: CASE EVENT DATE: 20190421
